FAERS Safety Report 6261403-6 (Version None)
Quarter: 2009Q3

REPORT INFORMATION
  Report Type: 
  Country: None (occurrence: None)
  Receive Date: 20090709
  Receipt Date: 20090608
  Transmission Date: 20100115
  Serious: No
  Sender: FDA-Public Use
  Company Number: US-BAYER-200919149NA

PATIENT
  Sex: Female

DRUGS (2)
  1. AVELOX [Suspect]
     Indication: SINUSITIS
     Dates: start: 20090201
  2. AVELOX [Suspect]
     Dates: start: 20090301

REACTIONS (2)
  - JOINT RANGE OF MOTION DECREASED [None]
  - POLYARTHRITIS [None]
